FAERS Safety Report 14585876 (Version 1)
Quarter: 2018Q1

REPORT INFORMATION
  Report Type: Spontaneous
  Country: US (occurrence: US)
  Receive Date: 20180228
  Receipt Date: 20180228
  Transmission Date: 20180509
  Serious: No
  Sender: FDA-Public Use
  Company Number: None

PATIENT
  Age: 24 Year
  Sex: Male

DRUGS (1)
  1. STELARA [Suspect]
     Active Substance: USTEKINUMAB
     Indication: PSORIASIS
     Dosage: 45 Q 12 WEEKS SG
     Dates: start: 20171109

REACTIONS (2)
  - Cough [None]
  - Therapy non-responder [None]

NARRATIVE: CASE EVENT DATE: 20180110
